FAERS Safety Report 22646998 (Version 1)
Quarter: 2023Q2

REPORT INFORMATION
  Report Type: Report from Study
  Country: UA (occurrence: UA)
  Receive Date: 20230627
  Receipt Date: 20230627
  Transmission Date: 20230722
  Serious: Yes (Life-Threatening, Hospitalization)
  Sender: FDA-Public Use
  Company Number: UA-ABBVIE-21P-269-3888345-00

PATIENT
  Age: 72 Year
  Sex: Male

DRUGS (2)
  1. VENETOCLAX [Suspect]
     Active Substance: VENETOCLAX
     Indication: Mantle cell lymphoma
     Route: 048
     Dates: start: 20201015, end: 20210428
  2. IBRUTINIB [Suspect]
     Active Substance: IBRUTINIB
     Indication: Mantle cell lymphoma
     Route: 048
     Dates: start: 20201015, end: 20210428

REACTIONS (5)
  - Intraventricular haemorrhage [Recovered/Resolved]
  - Subarachnoid haemorrhage [Recovered/Resolved]
  - Gastrointestinal haemorrhage [Recovered/Resolved]
  - Craniocerebral injury [Recovered/Resolved]
  - Skull fracture [Recovered/Resolved]

NARRATIVE: CASE EVENT DATE: 20210428
